FAERS Safety Report 8037801-7 (Version None)
Quarter: 2012Q1

REPORT INFORMATION
  Report Type: 
  Country: None (occurrence: None)
  Receive Date: 20120111
  Receipt Date: 20111014
  Transmission Date: 20120608
  Serious: Yes (Hospitalization)
  Sender: FDA-Public Use
  Company Number: US-TEVA-2011005398

PATIENT
  Sex: Female

DRUGS (5)
  1. OLMESARTAN MEDOXOMIL [Concomitant]
  2. ATORVASTATIN CALCIUM [Concomitant]
  3. NUVIGIL [Suspect]
     Route: 048
     Dates: start: 20100901, end: 20110301
  4. AMLODIPINE [Concomitant]
  5. INSULIN [Concomitant]

REACTIONS (2)
  - TONSILLECTOMY [None]
  - BRUXISM [None]
